FAERS Safety Report 5765350-5 (Version None)
Quarter: 2008Q2

REPORT INFORMATION
  Report Type: 
  Country: None (occurrence: None)
  Receive Date: 20080611
  Receipt Date: 20080602
  Transmission Date: 20081010
  Serious: Yes (Hospitalization, Other)
  Sender: FDA-Public Use
  Company Number: US-ELI_LILLY_AND_COMPANY-US200806001114

PATIENT
  Age: 50 Year
  Sex: Female

DRUGS (3)
  1. ZYPREXA [Suspect]
     Dosage: 40 MG, UNK
     Dates: start: 20080101
  2. ZYPREXA [Suspect]
     Dosage: 20 MG, UNK
     Dates: end: 20080401
  3. HALDOL /SCH/ [Concomitant]
     Dosage: 15 MG, DAILY (1/D)

REACTIONS (3)
  - NEUTROPENIA [None]
  - OVERDOSE [None]
  - PNEUMONIA [None]
